FAERS Safety Report 8480216-8 (Version None)
Quarter: 2012Q2

REPORT INFORMATION
  Report Type: 
  Country: None (occurrence: None)
  Receive Date: 20120629
  Receipt Date: 20120622
  Transmission Date: 20120825
  Serious: Yes (Other)
  Sender: FDA-Public Use
  Company Number: US-AMGEN-USASP2012019236

PATIENT
  Age: 74 Year
  Sex: Male
  Weight: 63.946 kg

DRUGS (16)
  1. ACYCLOVIR [Concomitant]
  2. ARANESP [Suspect]
     Indication: ANAEMIA
     Dosage: UNK
     Dates: end: 20120301
  3. ACYCLOVIR [Concomitant]
  4. LORAZEPAM [Suspect]
     Dosage: 0.5 MG, UNK
  5. DIFLUCAN [Concomitant]
  6. VITAMIN B12                        /00056201/ [Concomitant]
  7. AMLODIPINE [Concomitant]
  8. VELCADE [Concomitant]
     Dosage: UNK
     Route: 042
     Dates: end: 20120101
  9. BACTRIM [Concomitant]
  10. ARANESP [Suspect]
     Dates: end: 20120301
  11. DEXAMETHASONE [Concomitant]
     Dosage: 10 MG, UNK
  12. ARANESP [Suspect]
     Dates: end: 20120301
  13. NEURONTIN [Concomitant]
  14. AMLODIPINE BESYLATE [Concomitant]
  15. CYTOXAN [Concomitant]
     Dosage: 50 MG, QD
     Route: 048
     Dates: start: 20110101, end: 20120101
  16. BACTRIM DS [Concomitant]

REACTIONS (8)
  - RENAL FAILURE [None]
  - FATIGUE [None]
  - EXFOLIATIVE RASH [None]
  - SENSORY DISTURBANCE [None]
  - APLASIA PURE RED CELL [None]
  - PRURITUS [None]
  - BONE MARROW FAILURE [None]
  - PANCYTOPENIA [None]
